FAERS Safety Report 7721203-4 (Version None)
Quarter: 2011Q3

REPORT INFORMATION
  Report Type: 
  Country: None (occurrence: None)
  Receive Date: 20110831
  Receipt Date: 20110825
  Transmission Date: 20111222
  Serious: Yes (Death)
  Sender: FDA-Public Use
  Company Number: US-CELGENEUS-163-21880-11083253

PATIENT
  Sex: Male

DRUGS (6)
  1. GABAPENTIN [Concomitant]
     Dosage: 300 MILLIGRAM
     Route: 065
     Dates: start: 20100514
  2. OMEPRAZOLE [Concomitant]
     Dosage: 20 MILLIGRAM
     Route: 065
     Dates: start: 20100514
  3. REVLIMID [Suspect]
     Dosage: 15 MILLIGRAM
     Route: 048
     Dates: start: 20100514, end: 20101014
  4. METFORMIN [Concomitant]
     Dosage: 500 MILLIGRAM
     Route: 065
     Dates: start: 20100514
  5. REVLIMID [Suspect]
     Indication: MULTIPLE MYELOMA
     Dosage: 25 MILLIGRAM
     Route: 048
     Dates: start: 20091101
  6. REVLIMID [Suspect]
     Dosage: 5 MILLIGRAM
     Route: 048
     Dates: start: 20110315, end: 20110824

REACTIONS (1)
  - DEATH [None]
